FAERS Safety Report 5830717-3 (Version None)
Quarter: 2008Q3

REPORT INFORMATION
  Report Type: 
  Country: None (occurrence: None)
  Receive Date: 20080801
  Receipt Date: 20071019
  Transmission Date: 20090109
  Serious: No
  Sender: FDA-Public Use
  Company Number: US-BRISTOL-MYERS SQUIBB COMPANY-13948534

PATIENT
  Age: 72 Year
  Sex: Male
  Weight: 82 kg

DRUGS (7)
  1. COUMADIN [Suspect]
     Indication: HEART RATE IRREGULAR
     Dosage: REDUCED TO 5MG/DAY
     Route: 048
     Dates: start: 20070101
  2. LISINOPRIL [Suspect]
  3. LOSARTAN POTASSIUM [Suspect]
  4. ATENOLOL [Concomitant]
  5. GLYBURIDE [Concomitant]
  6. INDAPAMIDE [Concomitant]
  7. VITAMIN B-12 [Concomitant]

REACTIONS (3)
  - CONTUSION [None]
  - COUGH [None]
  - INTERNATIONAL NORMALISED RATIO INCREASED [None]
